FAERS Safety Report 15546609 (Version 1)
Quarter: 2018Q4

REPORT INFORMATION
  Report Type: Spontaneous
  Country: US (occurrence: US)
  Receive Date: 20181018
  Receipt Date: 20181018
  Transmission Date: 20190205
  Serious: No
  Sender: FDA-Public Use
  Company Number: None

PATIENT
  Age: 61 Year
  Sex: Female

DRUGS (1)
  1. ORENCIA [Suspect]
     Active Substance: ABATACEPT
     Indication: RHEUMATOID ARTHRITIS
     Dosage: ?          OTHER FREQUENCY:EVERY WEEK AS DIRE;?
     Route: 058
     Dates: start: 201804

REACTIONS (4)
  - Hyperhidrosis [None]
  - Thyroid disorder [None]
  - Hypercholesterolaemia [None]
  - Osteoarthritis [None]
